FAERS Safety Report 13819219 (Version 2)
Quarter: 2018Q1

REPORT INFORMATION
  Report Type: Report from Study
  Country: US (occurrence: US)
  Receive Date: 20170731
  Receipt Date: 20180201
  Transmission Date: 20180508
  Serious: No
  Sender: FDA-Public Use
  Company Number: US-EXELIXIS-CABO-17008390

PATIENT
  Sex: Male

DRUGS (23)
  1. CLONIDINE. [Concomitant]
     Active Substance: CLONIDINE
  2. ANDROGEL [Concomitant]
     Active Substance: TESTOSTERONE
  3. LIDOCAINE. [Concomitant]
     Active Substance: LIDOCAINE
  4. HYDROCORTISONE. [Concomitant]
     Active Substance: HYDROCORTISONE
  5. PRAVASTATIN. [Concomitant]
     Active Substance: PRAVASTATIN
  6. TEMAZEPAM. [Concomitant]
     Active Substance: TEMAZEPAM
  7. AMLODIPINE [Concomitant]
     Active Substance: AMLODIPINE BESYLATE
  8. LEVOTHYROXINE. [Concomitant]
     Active Substance: LEVOTHYROXINE
  9. VIAGRA [Concomitant]
     Active Substance: SILDENAFIL CITRATE
  10. CABOMETYX [Suspect]
     Active Substance: CABOZANTINIB S-MALATE
     Dosage: 20 MG, QD
     Route: 048
     Dates: start: 201703, end: 2017
  11. BUPRENORPHINE. [Concomitant]
     Active Substance: BUPRENORPHINE
  12. ECONAZOLE [Concomitant]
     Active Substance: ECONAZOLE
  13. ZOLPIDEM [Concomitant]
     Active Substance: ZOLPIDEM\ZOLPIDEM TARTRATE
  14. BENAZEPRIL [Concomitant]
     Active Substance: BENAZEPRIL HYDROCHLORIDE
  15. ERYTHROMYCIN. [Concomitant]
     Active Substance: ERYTHROMYCIN
  16. LORAZEPAM. [Concomitant]
     Active Substance: LORAZEPAM
  17. HYDROCHLOROTHIAZIDE. [Concomitant]
     Active Substance: HYDROCHLOROTHIAZIDE
  18. AXIRON [Concomitant]
     Active Substance: TESTOSTERONE
  19. CABOMETYX [Suspect]
     Active Substance: CABOZANTINIB S-MALATE
     Indication: RENAL CANCER
     Dosage: 60 MG, QD
     Route: 048
     Dates: start: 20170128, end: 2017
  20. PROAIR HFA [Concomitant]
     Active Substance: ALBUTEROL SULFATE
  21. FLUDROCORTISONE [Concomitant]
     Active Substance: FLUDROCORTISONE
  22. FUROSEMIDE. [Concomitant]
     Active Substance: FUROSEMIDE
  23. OXYCODONE [Concomitant]
     Active Substance: OXYCODONE

REACTIONS (5)
  - Muscle spasms [Unknown]
  - Toxicity to various agents [Unknown]
  - Drug intolerance [Unknown]
  - Fatigue [Unknown]
  - Palmar-plantar erythrodysaesthesia syndrome [Unknown]
